FAERS Safety Report 8435785-0 (Version None)
Quarter: 2012Q2

REPORT INFORMATION
  Report Type: 
  Country: None (occurrence: None)
  Receive Date: 20120608
  Receipt Date: 20120608
  Transmission Date: 20120825
  Serious: Yes (Life-Threatening)
  Sender: FDA-Public Use
  Company Number: None

PATIENT
  Age: 64 Year
  Sex: Male
  Weight: 87.9 kg

DRUGS (2)
  1. VANCOMYCIN [Suspect]
     Indication: PERITONEAL FLUID ANALYSIS ABNORMAL
     Dosage: 750 MG BID IV
     Route: 042
     Dates: start: 20120518, end: 20120520
  2. PIPERACILLIN AND TAZOBACTAM [Suspect]
     Indication: PERITONEAL FLUID ANALYSIS ABNORMAL
     Dosage: 3.75 MG QID IV
     Route: 042
     Dates: start: 20120518, end: 20120520

REACTIONS (15)
  - STEVENS-JOHNSON SYNDROME [None]
  - ALCOHOLIC LIVER DISEASE [None]
  - DIARRHOEA [None]
  - LARGE INTESTINAL ULCER HAEMORRHAGE [None]
  - HAEMORRHOIDAL HAEMORRHAGE [None]
  - HAEMORRHAGIC ANAEMIA [None]
  - DIVERTICULUM [None]
  - BLISTER [None]
  - TONGUE BLISTERING [None]
  - LEUKOCYTOSIS [None]
  - TOXIC EPIDERMAL NECROLYSIS [None]
  - CHRONIC OBSTRUCTIVE PULMONARY DISEASE [None]
  - PERITONEAL FLUID ANALYSIS ABNORMAL [None]
  - ORTHOSTATIC HYPOTENSION [None]
  - CONDITION AGGRAVATED [None]
